FAERS Safety Report 25759086 (Version 1)
Quarter: 2025Q3

REPORT INFORMATION
  Report Type: Spontaneous
  Country: US (occurrence: US)
  Receive Date: 20250904
  Receipt Date: 20250904
  Transmission Date: 20251020
  Serious: No
  Sender: ELI LILLY AND COMPANY
  Company Number: US-ELI_LILLY_AND_COMPANY-US202508029669

PATIENT
  Age: 88 Year

DRUGS (4)
  1. ZEPBOUND [Suspect]
     Active Substance: TIRZEPATIDE
     Indication: Obstructive sleep apnoea syndrome
     Dosage: 2.5 MG, WEEKLY (1/W)
     Route: 065
     Dates: start: 20250411
  2. ZEPBOUND [Suspect]
     Active Substance: TIRZEPATIDE
     Indication: Obstructive sleep apnoea syndrome
     Dosage: 5 MG, WEEKLY (1/W)
     Route: 065
  3. ZEPBOUND [Suspect]
     Active Substance: TIRZEPATIDE
     Indication: Obstructive sleep apnoea syndrome
     Dosage: 7.5 MG, WEEKLY (1/W)
     Route: 065
     Dates: start: 20250606
  4. ZEPBOUND [Suspect]
     Active Substance: TIRZEPATIDE
     Indication: Obstructive sleep apnoea syndrome
     Route: 065
     Dates: start: 20250704

REACTIONS (5)
  - Extra dose administered [Unknown]
  - Wrong technique in product usage process [Unknown]
  - Somnolence [Unknown]
  - Feeling abnormal [Unknown]
  - Fatigue [Unknown]
